FAERS Safety Report 6028470-6 (Version None)
Quarter: 2008Q4

REPORT INFORMATION
  Report Type: 
  Country: None (occurrence: None)
  Receive Date: 20081231
  Receipt Date: 20081231
  Transmission Date: 20090506
  Serious: Yes (Hospitalization)
  Sender: FDA-Public Use
  Company Number: None

PATIENT
  Age: 79 Year
  Sex: Male
  Weight: 66.22 kg

DRUGS (2)
  1. DOXAZOSIN MESYLATE [Suspect]
     Indication: DIZZINESS
     Dosage: 1 TAB AT BEDTIME PO
     Route: 048
     Dates: start: 20080915, end: 20081023
  2. DOXAZOSIN MESYLATE [Suspect]
     Indication: HEADACHE
     Dosage: 1 TAB AT BEDTIME PO
     Route: 048
     Dates: start: 20080915, end: 20081023

REACTIONS (2)
  - DIZZINESS [None]
  - HEADACHE [None]
